FAERS Safety Report 17734083 (Version 3)
Quarter: 2020Q2

REPORT INFORMATION
  Report Type: Spontaneous
  Country: PY (occurrence: PY)
  Receive Date: 20200501
  Receipt Date: 20200522
  Transmission Date: 20200714
  Serious: Yes (Hospitalization, Other)
  Sender: FDA-Public Use
  Company Number: PY-ASTRAZENECA-2020SE58278

PATIENT
  Age: 5 Month

DRUGS (1)
  1. SYNAGIS [Suspect]
     Active Substance: PALIVIZUMAB
     Indication: PRODUCT USED FOR UNKNOWN INDICATION
     Route: 030

REACTIONS (6)
  - Wheezing [Unknown]
  - Bronchopulmonary dysplasia [Unknown]
  - Lumbar hernia [Unknown]
  - Bronchial obstruction [Unknown]
  - Rash [Recovering/Resolving]
  - Inguinal hernia [Unknown]
